FAERS Safety Report 6623181-8 (Version None)
Quarter: 2010Q1

REPORT INFORMATION
  Report Type: 
  Country: None (occurrence: None)
  Receive Date: 20100310
  Receipt Date: 20091218
  Transmission Date: 20100710
  Serious: No
  Sender: FDA-Public Use
  Company Number: US-BIOGENIDEC-2009BI041437

PATIENT
  Sex: Female

DRUGS (4)
  1. AVONEX [Suspect]
     Indication: MULTIPLE SCLEROSIS
     Route: 030
     Dates: start: 19990101
  2. AVONEX [Suspect]
     Route: 030
  3. NEURONTIN [Concomitant]
     Indication: FACIAL NEURALGIA
     Route: 048
  4. TRILEPTAL [Concomitant]
     Indication: FACIAL NEURALGIA
     Route: 048

REACTIONS (5)
  - BALANCE DISORDER [None]
  - FACIAL NEURALGIA [None]
  - HEADACHE [None]
  - SOMNOLENCE [None]
  - VISUAL ACUITY REDUCED [None]
